FAERS Safety Report 19201684 (Version 4)
Quarter: 2021Q3

REPORT INFORMATION
  Report Type: Spontaneous
  Country: IN (occurrence: IN)
  Receive Date: 20210430
  Receipt Date: 20210908
  Transmission Date: 20211014
  Serious: Yes (Hospitalization, Other)
  Sender: FDA-Public Use
  Company Number: IN-PFIZER INC-2021011522

PATIENT
  Age: 68 Year
  Sex: Female

DRUGS (6)
  1. PALBACE [Suspect]
     Active Substance: PALBOCICLIB
     Dosage: UNK
     Dates: start: 20210612
  2. MORPHINE [Concomitant]
     Active Substance: MORPHINE
     Dosage: UNK
  3. LETROZOLE. [Concomitant]
     Active Substance: LETROZOLE
     Dosage: UNK
  4. PALBACE [Suspect]
     Active Substance: PALBOCICLIB
     Indication: BREAST CANCER METASTATIC
     Dosage: 125 MG, CYCLIC (ONCE A DAY, 3 WEEKS ON AND 1 WEEK OFF)
     Route: 048
     Dates: start: 20191230
  5. ZOLEDRONIC ACID [Suspect]
     Active Substance: ZOLEDRONIC ACID
     Dosage: UNK
     Dates: start: 20200907
  6. SHELCAL [CALCIUM;COLECALCIFEROL] [Concomitant]
     Active Substance: CALCIUM\CHOLECALCIFEROL
     Dosage: 500 MG, 1X/DAY
     Route: 048

REACTIONS (13)
  - Constipation [Unknown]
  - Asthenia [Unknown]
  - Heart rate increased [Unknown]
  - Musculoskeletal chest pain [Unknown]
  - Cerebral ischaemia [Unknown]
  - Peripheral sensory neuropathy [Unknown]
  - Cholecystitis [Unknown]
  - Decreased appetite [Unknown]
  - Pain [Unknown]
  - Blood pressure systolic increased [Unknown]
  - Refraction disorder [Unknown]
  - Vomiting [Unknown]
  - Abdominal pain [Unknown]

NARRATIVE: CASE EVENT DATE: 202009
